FAERS Safety Report 7678237-8 (Version None)
Quarter: 2011Q3

REPORT INFORMATION
  Report Type: 
  Country: None (occurrence: None)
  Receive Date: 20110811
  Receipt Date: 20110810
  Transmission Date: 20111222
  Serious: Yes (Hospitalization)
  Sender: FDA-Public Use
  Company Number: US-ROXANE LABORATORIES, INC.-2011-RO-01134RO

PATIENT
  Sex: Male

DRUGS (2)
  1. BALSALAZIDE DISODIUM [Suspect]
     Indication: COLITIS ULCERATIVE
     Dosage: 2250 MG
     Route: 048
     Dates: start: 20110722, end: 20110722
  2. BALSALAZIDE DISODIUM [Suspect]
     Dosage: 750 MG
     Route: 048
     Dates: start: 20110723, end: 20110723

REACTIONS (4)
  - PAIN IN EXTREMITY [None]
  - DYSPNOEA [None]
  - CHEST DISCOMFORT [None]
  - CHEST PAIN [None]
